APPROVED DRUG PRODUCT: LOGEN
Active Ingredient: ATROPINE SULFATE; DIPHENOXYLATE HYDROCHLORIDE
Strength: 0.025MG;2.5MG
Dosage Form/Route: TABLET;ORAL
Application: A088962 | Product #001
Applicant: SUPERPHARM CORP
Approved: May 10, 1985 | RLD: No | RS: No | Type: DISCN